FAERS Safety Report 9919156 (Version 4)
Quarter: 2014Q3

REPORT INFORMATION
  Report Type: Report from Study
  Country: CA (occurrence: CA)
  Receive Date: 20140224
  Receipt Date: 20140704
  Transmission Date: 20150326
  Serious: Yes (Other)
  Sender: FDA-Public Use
  Company Number: CA-ROCHE-1280569

PATIENT
  Age: 71 Year
  Sex: Male
  Weight: 73.5 kg

DRUGS (20)
  1. MIRTAZAPINE. [Concomitant]
     Active Substance: MIRTAZAPINE
  2. ASA [Concomitant]
     Active Substance: ASPIRIN
  3. LISINOPRIL. [Concomitant]
     Active Substance: LISINOPRIL
  4. STATEX (CANADA) [Concomitant]
     Route: 065
  5. SULFASALAZINE. [Concomitant]
     Active Substance: SULFASALAZINE
  6. ESOMEPRAZOLE [Concomitant]
     Active Substance: ESOMEPRAZOLE
  7. SYSTANE [Concomitant]
     Active Substance: HYPROMELLOSE 2910 (4000 MPA.S)
  8. METHYLPREDNISOLONE [Concomitant]
     Active Substance: METHYLPREDNISOLONE
     Indication: PREMEDICATION
     Route: 042
     Dates: start: 20130910, end: 20140218
  9. SPIRONOLACTONE. [Concomitant]
     Active Substance: SPIRONOLACTONE
  10. NADOLOL. [Concomitant]
     Active Substance: NADOLOL
  11. PLAQUENIL [Concomitant]
     Active Substance: HYDROXYCHLOROQUINE SULFATE
  12. PREDNISONE. [Concomitant]
     Active Substance: PREDNISONE
  13. RITUXAN [Suspect]
     Active Substance: RITUXIMAB
     Indication: RHEUMATOID ARTHRITIS
     Dosage: DATE OF RECENT DOSE : 23/SEP/2013.?FREQUENCY : DAY 1 AND 15.
     Route: 042
     Dates: start: 20130910, end: 20140218
  14. ACETAMINOPHEN. [Concomitant]
     Active Substance: ACETAMINOPHEN
     Indication: PREMEDICATION
     Route: 048
     Dates: start: 20130910, end: 20140218
  15. DIPHENHYDRAMINE HYDROCHLORIDE. [Concomitant]
     Active Substance: DIPHENHYDRAMINE HYDROCHLORIDE
     Indication: PREMEDICATION
     Route: 048
     Dates: start: 20130910, end: 20140218
  16. LANTUS [Concomitant]
     Active Substance: INSULIN GLARGINE
  17. LAX-A-DAY [Concomitant]
  18. APO-CLONAZEPAM [Concomitant]
     Active Substance: CLONAZEPAM
  19. ASMANEX [Concomitant]
     Active Substance: MOMETASONE FUROATE
  20. HUMALOG [Concomitant]
     Active Substance: INSULIN LISPRO

REACTIONS (9)
  - Pain in extremity [Not Recovered/Not Resolved]
  - Cataract [Unknown]
  - Diarrhoea [Unknown]
  - Hypotension [Unknown]
  - Wound secretion [Recovering/Resolving]
  - Joint swelling [Not Recovered/Not Resolved]
  - Drug ineffective [Unknown]
  - Bronchitis [Unknown]
  - Pain in extremity [Not Recovered/Not Resolved]

NARRATIVE: CASE EVENT DATE: 20130920
